FAERS Safety Report 6032062-2 (Version None)
Quarter: 2009Q1

REPORT INFORMATION
  Report Type: 
  Country: None (occurrence: None)
  Receive Date: 20090107
  Receipt Date: 20081225
  Transmission Date: 20090719
  Serious: Yes (Hospitalization, Other)
  Sender: FDA-Public Use
  Company Number: JPI-P-005323

PATIENT
  Age: 68 Year
  Sex: Male

DRUGS (9)
  1. LUVOX [Suspect]
     Indication: DEPRESSIVE SYMPTOM
     Dosage: 50 MG, 1 D) OTHER
     Dates: start: 20080930, end: 20081006
  2. HALOPERIDOL [Concomitant]
  3. LEVOMEPROMAZINE MALEATE [Concomitant]
  4. BROMPERIDOL [Concomitant]
  5. PERICIAZINE [Concomitant]
  6. PEROSPIRONE HYDROCHLORIDE HYDRATE [Concomitant]
  7. LACTOBACILLUS BIFIDUS, LYOPHILIZED [Concomitant]
  8. ENTERAL NUTRITION [Concomitant]
  9. MAGNESIUM OXIDE [Concomitant]

REACTIONS (1)
  - EPILEPSY [None]
